FAERS Safety Report 25756174 (Version 1)
Quarter: 2025Q3

REPORT INFORMATION
  Report Type: Other
  Country: EU (occurrence: EU)
  Receive Date: 20250903
  Receipt Date: 20250903
  Transmission Date: 20251021
  Serious: Yes (Hospitalization, Other)
  Sender: CHANGZHOU PHARMACEUTICAL FACTORY
  Company Number: EU-Changzhou Pharmaceutical Factory-2183735

PATIENT
  Age: 78 Year
  Sex: Female

DRUGS (2)
  1. ROSUVASTATIN CALCIUM [Suspect]
     Active Substance: ROSUVASTATIN CALCIUM
     Indication: Coronary artery disease
  2. DAPAGLIFLOZIN [Interacting]
     Active Substance: DAPAGLIFLOZIN

REACTIONS (3)
  - Rhabdomyolysis [Recovered/Resolved]
  - Drug interaction [Unknown]
  - Acute kidney injury [Recovering/Resolving]
